FAERS Safety Report 8441856 (Version 4)
Quarter: 2013Q1

REPORT INFORMATION
  Report Type: Spontaneous
  Country: BR (occurrence: BR)
  Receive Date: 20120305
  Receipt Date: 20130114
  Transmission Date: 20140127
  Serious: Yes (Other)
  Sender: FDA-Public Use
  Company Number: PHHY2012BR016529

PATIENT
  Sex: Female

DRUGS (2)
  1. RITALINA [Suspect]
     Indication: ATTENTION DEFICIT/HYPERACTIVITY DISORDER
     Dosage: 1 OR 2 TABLET (10 MG) DAILY
     Route: 048
     Dates: start: 2010, end: 201201
  2. RITALIN LA [Suspect]
     Dosage: 30 MG, DAILY
     Route: 048
     Dates: start: 201201, end: 201202

REACTIONS (3)
  - Hypoglycaemia [Unknown]
  - Exposure during pregnancy [Unknown]
  - Normal newborn [Unknown]
